FAERS Safety Report 15399924 (Version 4)
Quarter: 2018Q4

REPORT INFORMATION
  Report Type: Spontaneous
  Country: IT (occurrence: IT)
  Receive Date: 20180919
  Receipt Date: 20181005
  Transmission Date: 20190204
  Serious: Yes (Other)
  Sender: FDA-Public Use
  Company Number: IT-ALVOGEN-2018-ALVOGEN-097405

PATIENT
  Age: 80 Year
  Sex: Male

DRUGS (4)
  1. HYDROXYCHLOROQUINE SULFATE. [Suspect]
     Active Substance: HYDROXYCHLOROQUINE SULFATE
     Indication: MEDICATION ERROR
     Dosage: 1.0DF ONCE/SINGLE ADMINISTRATION
     Route: 048
     Dates: start: 20180715
  2. LISINOPRIL. [Suspect]
     Active Substance: LISINOPRIL
     Indication: MEDICATION ERROR
     Dosage: 1.0 DF ONCE/SINGLE ADMINISTRATION
     Route: 048
     Dates: start: 20180715
  3. HYDROCHLOROTHIAZIDE. [Suspect]
     Active Substance: HYDROCHLOROTHIAZIDE
     Indication: MEDICATION ERROR
     Dosage: 1.0DF ONCE/SINGLE ADMINISTRATION
     Route: 048
     Dates: start: 20180715
  4. DILTIAZEM. [Suspect]
     Active Substance: DILTIAZEM
     Indication: MEDICATION ERROR
     Dosage: 1.0DF ONCE/SINGLE ADMINISTRATION
     Route: 048
     Dates: start: 20180715

REACTIONS (3)
  - Hypotension [Recovered/Resolved]
  - Anuria [Recovered/Resolved]
  - Medication error [Unknown]

NARRATIVE: CASE EVENT DATE: 20180715
